FAERS Safety Report 7302438-1 (Version None)
Quarter: 2011Q1

REPORT INFORMATION
  Report Type: 
  Country: None (occurrence: None)
  Receive Date: 20110218
  Receipt Date: 20110215
  Transmission Date: 20110831
  Serious: Yes (Hospitalization)
  Sender: FDA-Public Use
  Company Number: JP-EISAI INC-E2090-01492-SPO-JP

PATIENT
  Sex: Female

DRUGS (2)
  1. EXCEGRAN [Suspect]
     Indication: EPILEPSY
     Dosage: UNKNOWN
     Route: 048
  2. PHENOBAL [Suspect]
     Dosage: UNKNOWN
     Route: 065

REACTIONS (1)
  - DRUG ERUPTION [None]
